FAERS Safety Report 14221382 (Version 8)
Quarter: 2018Q1

REPORT INFORMATION
  Report Type: Spontaneous
  Country: US (occurrence: US)
  Receive Date: 20171124
  Receipt Date: 20180321
  Transmission Date: 20180508
  Serious: Yes (Other)
  Sender: FDA-Public Use
  Company Number: US-PFIZER INC-2017507339

PATIENT
  Age: 75 Year
  Sex: Female
  Weight: 58.96 kg

DRUGS (6)
  1. IBRANCE [Suspect]
     Active Substance: PALBOCICLIB
     Dosage: 125 MG, CYCLIC (DAILY X 21 D OF 28 D CYCLE)
     Route: 048
     Dates: start: 20171112, end: 20171122
  2. IBRANCE [Suspect]
     Active Substance: PALBOCICLIB
     Dosage: 100 MG, CYCLIC(D 1-21Q28 DAYS)
     Route: 048
     Dates: start: 20171218
  3. IBRANCE [Suspect]
     Active Substance: PALBOCICLIB
     Dosage: 100 MG, CYCLIC (D1-21 Q28 DAYS) (1CAPSULE DAILY 1-21/DAYS)
     Route: 048
     Dates: start: 20171109
  4. IBRANCE [Suspect]
     Active Substance: PALBOCICLIB
     Dosage: 125 MG, CYCLIC (D 1-21 Q 28 DAYS)
     Route: 048
     Dates: start: 20171109, end: 20171122
  5. IBRANCE [Suspect]
     Active Substance: PALBOCICLIB
     Dosage: 100 MG, CYCLIC (DL-21 Q28 DAYS)
     Route: 048
     Dates: start: 20171109
  6. IBRANCE [Suspect]
     Active Substance: PALBOCICLIB
     Indication: BREAST CANCER METASTATIC
     Dosage: 100 MG, CYCLIC (D 1-21Q28 DAYS)
     Route: 048
     Dates: start: 20171109, end: 20180124

REACTIONS (5)
  - Neutropenia [Not Recovered/Not Resolved]
  - White blood cell count decreased [Not Recovered/Not Resolved]
  - Arthralgia [Unknown]
  - Oral herpes [Unknown]
  - Fatigue [Unknown]

NARRATIVE: CASE EVENT DATE: 201711
